FAERS Safety Report 9087076 (Version 1)
Quarter: 2013Q1

REPORT INFORMATION
  Report Type: Spontaneous
  Country: CH (occurrence: CH)
  Receive Date: 20130201
  Receipt Date: 20130201
  Transmission Date: 20140127
  Serious: Yes (Hospitalization)
  Sender: FDA-Public Use
  Company Number: CH-ROCHE-1184020

PATIENT
  Age: 71 Year
  Sex: Female

DRUGS (13)
  1. MABTHERA [Suspect]
     Indication: PRODUCT USED FOR UNKNOWN INDICATION
     Route: 041
     Dates: start: 20081003, end: 20081029
  2. PREDNISONE [Suspect]
     Indication: PRODUCT USED FOR UNKNOWN INDICATION
     Route: 048
     Dates: start: 2009
  3. PREDNISONE [Suspect]
     Route: 065
     Dates: start: 2009
  4. PROGRAF [Suspect]
     Indication: PRODUCT USED FOR UNKNOWN INDICATION
     Route: 065
     Dates: end: 200906
  5. BONVIVA [Concomitant]
  6. TOREM [Concomitant]
     Route: 065
  7. BELOC-ZOK COMP [Concomitant]
     Route: 065
  8. FLUCTINE [Concomitant]
     Route: 065
  9. CALCIMAGON-D3 [Concomitant]
  10. INSULATARD [Concomitant]
     Route: 065
  11. NOVORAPID [Concomitant]
     Route: 065
  12. ASPIRIN CARDIO [Concomitant]
     Route: 065
  13. NEXIUM [Concomitant]
     Route: 065

REACTIONS (9)
  - Bacterial infection [Recovered/Resolved]
  - Cytomegalovirus infection [Recovered/Resolved]
  - Viral infection [Recovered/Resolved]
  - Oesophageal candidiasis [Recovered/Resolved]
  - Urinary tract infection [Recovered/Resolved]
  - Pneumonia [Recovered/Resolved]
  - Brain abscess [Recovered/Resolved]
  - Cross infection [Recovered/Resolved]
  - Colitis [Recovered/Resolved]
